FAERS Safety Report 17241752 (Version 1)
Quarter: 2020Q1

REPORT INFORMATION
  Report Type: Spontaneous
  Country: US (occurrence: US)
  Receive Date: 20200107
  Receipt Date: 20200107
  Transmission Date: 20200409
  Serious: Yes (Life-Threatening, Other)
  Sender: FDA-Public Use
  Company Number: US-VIRTUS PHARMACEUTICALS, LLC-2019VTS00078

PATIENT
  Age: 44 Year
  Sex: Female

DRUGS (1)
  1. NALOXONE HYDROCHLORIDE. [Suspect]
     Active Substance: NALOXONE HYDROCHLORIDE
     Dosage: 0.5 MG, ONCE
     Route: 042

REACTIONS (2)
  - Respiratory failure [Recovering/Resolving]
  - Muscle rigidity [Recovered/Resolved]
